FAERS Safety Report 7089055-6 (Version None)
Quarter: 2010Q4

REPORT INFORMATION
  Report Type: 
  Country: None (occurrence: None)
  Receive Date: 20101108
  Receipt Date: 20101028
  Transmission Date: 20110411
  Serious: Yes (Other)
  Sender: FDA-Public Use
  Company Number: B0672917A

PATIENT
  Age: 73 Year
  Sex: Male
  Weight: 70 kg

DRUGS (3)
  1. REQUIP [Suspect]
     Indication: PARKINSON'S DISEASE
     Route: 065
  2. AZILECT [Suspect]
     Dates: start: 20100323
  3. MADOPAR [Concomitant]
     Dosage: 100MG FOUR TIMES PER DAY

REACTIONS (1)
  - SLEEP DISORDER [None]
